FAERS Safety Report 5952097-5 (Version None)
Quarter: 2008Q4

REPORT INFORMATION
  Report Type: 
  Country: None (occurrence: None)
  Receive Date: 20081113
  Receipt Date: 20080409
  Transmission Date: 20090506
  Serious: No
  Sender: FDA-Public Use
  Company Number: A0721866A

PATIENT
  Age: 60 Year
  Sex: Male

DRUGS (4)
  1. COREG [Suspect]
     Indication: HYPERTENSION
     Dosage: 25MG TWICE PER DAY
     Route: 048
     Dates: start: 20070101
  2. ZESTRIL [Concomitant]
  3. PAXIL [Concomitant]
  4. BUSPIRONE HCL [Concomitant]

REACTIONS (4)
  - ASTHENIA [None]
  - HEART RATE IRREGULAR [None]
  - THERAPEUTIC RESPONSE UNEXPECTED [None]
  - WEIGHT LOSS POOR [None]
